FAERS Safety Report 5752007-X (Version None)
Quarter: 2008Q2

REPORT INFORMATION
  Report Type: 
  Country: None (occurrence: None)
  Receive Date: 20080527
  Receipt Date: 20080415
  Transmission Date: 20081010
  Serious: Yes (Hospitalization)
  Sender: FDA-Public Use
  Company Number: 002#8#2008-00420

PATIENT

DRUGS (1)
  1. CALCIFLOR TAB [Suspect]
     Indication: DRUG USE FOR UNKNOWN INDICATION

REACTIONS (8)
  - DECREASED APPETITE [None]
  - DEHYDRATION [None]
  - DRUG TOXICITY [None]
  - HYPERCALCAEMIA [None]
  - LETHARGY [None]
  - RESTLESSNESS [None]
  - TREATMENT FAILURE [None]
  - VOMITING [None]
